FAERS Safety Report 23925276 (Version 1)
Quarter: 2024Q2

REPORT INFORMATION
  Report Type: Spontaneous
  Country: GB (occurrence: GB)
  Receive Date: 20240531
  Receipt Date: 20240531
  Transmission Date: 20240716
  Serious: Yes (Other)
  Sender: FDA-Public Use
  Company Number: GB-MHRA-TPP5869741C7709011YC1716916437090

PATIENT
  Age: 71 Year
  Sex: Female
  Weight: 86 kg

DRUGS (8)
  1. EZETIMIBE [Suspect]
     Active Substance: EZETIMIBE
     Indication: Product used for unknown indication
     Dosage: TAKE ONE DAILY
     Route: 065
     Dates: start: 20240507
  2. BECLOMETHASONE DIPROPIONATE [Concomitant]
     Active Substance: BECLOMETHASONE DIPROPIONATE
     Indication: Product used for unknown indication
     Dosage: INHALE 2 DOSES TWICE DAILY
     Route: 055
     Dates: start: 20240226
  3. Clinitas [Concomitant]
     Indication: Product used for unknown indication
     Dosage: ONE DROP 3-4 TIMES/DAY
     Route: 065
     Dates: start: 20231030
  4. LEVOTHYROXINE [Concomitant]
     Active Substance: LEVOTHYROXINE\LEVOTHYROXINE SODIUM
     Indication: Product used for unknown indication
     Dosage: TAKE ONE EACH MORNING
     Route: 065
     Dates: start: 20240226
  5. FLUTICASONE [Concomitant]
     Active Substance: FLUTICASONE
     Indication: Product used for unknown indication
     Dosage: 2 PUFF(S) ONCE DAILY
     Route: 065
     Dates: start: 20240226
  6. OMEPRAZOLE [Concomitant]
     Active Substance: DONEPEZIL HYDROCHLORIDE\OMEPRAZOLE\OMEPRAZOLE MAGNESIUM
     Indication: Product used for unknown indication
     Dosage: TAKE ONE DAILY
     Route: 065
     Dates: start: 20240226
  7. ALBUTEROL [Concomitant]
     Active Substance: ALBUTEROL
     Indication: Product used for unknown indication
     Dosage: INHALE 2 DOSES AS NEEDED
     Route: 055
     Dates: start: 20240226
  8. XAILIN NIGHT [Concomitant]
     Indication: Product used for unknown indication
     Dosage: TO BE USED EACH NIGHT
     Route: 065
     Dates: start: 20240226

REACTIONS (2)
  - Myalgia [Recovered/Resolved]
  - Pyrexia [Unknown]
